FAERS Safety Report 8054049-0 (Version None)
Quarter: 2012Q1

REPORT INFORMATION
  Report Type: 
  Country: None (occurrence: None)
  Receive Date: 20120118
  Receipt Date: 20120111
  Transmission Date: 20120608
  Serious: Yes (Other)
  Sender: FDA-Public Use
  Company Number: US-US-EMD SERONO, INC.-7106600

PATIENT
  Sex: Male

DRUGS (3)
  1. REBIF [Suspect]
     Indication: MULTIPLE SCLEROSIS
     Route: 058
     Dates: start: 20080102
  2. GEODON [Suspect]
     Indication: SCHIZOPHRENIA
     Dates: start: 20040101
  3. STELAZINE [Suspect]
     Indication: SCHIZOPHRENIA
     Dates: end: 20040101

REACTIONS (1)
  - PARKINSON'S DISEASE [None]
